FAERS Safety Report 13957943 (Version 1)
Quarter: 2017Q3

REPORT INFORMATION
  Report Type: Spontaneous
  Country: US (occurrence: US)
  Receive Date: 20170912
  Receipt Date: 20170912
  Transmission Date: 20171128
  Serious: Yes (Life-Threatening, Hospitalization, Other)
  Sender: FDA-Public Use
  Company Number: US-APOTEX-2017AP017768

PATIENT
  Age: 60 Year
  Sex: Male

DRUGS (2)
  1. AZACITIDINE. [Concomitant]
     Active Substance: AZACITIDINE
     Indication: CHRONIC MYELOMONOCYTIC LEUKAEMIA
     Route: 065
  2. FENTANYL TRANSDERMAL SYSTEM [Suspect]
     Active Substance: FENTANYL
     Indication: PAIN
     Dosage: 100 ?G, EVERY 72 HOUR
     Route: 062

REACTIONS (9)
  - Asphyxia [Recovered/Resolved]
  - Tonic convulsion [Recovered/Resolved]
  - Incorrect route of drug administration [Unknown]
  - Blood pressure decreased [Recovered/Resolved]
  - Feeling of despair [Recovered/Resolved]
  - Intentional product misuse [Unknown]
  - Depressed level of consciousness [Recovered/Resolved]
  - Dyspnoea [Recovered/Resolved]
  - Overdose [Unknown]
